FAERS Safety Report 16689405 (Version 2)
Quarter: 2019Q4

REPORT INFORMATION
  Report Type: Spontaneous
  Country: US (occurrence: US)
  Receive Date: 20190809
  Receipt Date: 20191024
  Transmission Date: 20200122
  Serious: Yes (Hospitalization, Other)
  Sender: FDA-Public Use
  Company Number: US-BRISTOL-MYERS SQUIBB COMPANY-BMS-2019-076902

PATIENT
  Age: 80 Year
  Sex: Male
  Weight: 35 kg

DRUGS (4)
  1. NIVOLUMAB [Suspect]
     Active Substance: NIVOLUMAB
     Indication: LUNG CARCINOMA CELL TYPE UNSPECIFIED RECURRENT
     Dosage: 360 MILLIGRAM, Q3WK
     Route: 042
     Dates: start: 20190409, end: 20190528
  2. CARBOPLATIN. [Suspect]
     Active Substance: CARBOPLATIN
     Indication: LUNG CARCINOMA CELL TYPE UNSPECIFIED RECURRENT
     Dosage: 1 DOSAGE FORM, Q3WK
     Route: 042
     Dates: start: 20190507, end: 20190528
  3. GEMCITABINE HYDROCHLORIDE. [Suspect]
     Active Substance: GEMCITABINE HYDROCHLORIDE
     Indication: LUNG CARCINOMA CELL TYPE UNSPECIFIED RECURRENT
     Dosage: 1 DOSAGE FORM, Q3WK
     Route: 042
     Dates: start: 20190409, end: 20190611
  4. CISPLATIN. [Suspect]
     Active Substance: CISPLATIN
     Indication: LUNG CARCINOMA CELL TYPE UNSPECIFIED RECURRENT
     Dosage: 110 MILLIGRAM, ONCE
     Route: 042
     Dates: start: 20190409

REACTIONS (7)
  - Bronchopleural fistula [Unknown]
  - Prescribed overdose [Unknown]
  - Weight decreased [Unknown]
  - Post procedural complication [Unknown]
  - Pneumothorax [Unknown]
  - Off label use [Unknown]
  - Decreased appetite [Unknown]

NARRATIVE: CASE EVENT DATE: 20190725
